FAERS Safety Report 24563668 (Version 1)
Quarter: 2024Q4

REPORT INFORMATION
  Report Type: Spontaneous
  Country: US (occurrence: US)
  Receive Date: 20241030
  Receipt Date: 20241030
  Transmission Date: 20250115
  Serious: Yes (Hospitalization, Other)
  Sender: ZYDUS PHARM
  Company Number: US-CADILA HEALTHCARE LIMITED-US-ZYDUS-114153

PATIENT

DRUGS (10)
  1. AZATHIOPRINE [Suspect]
     Active Substance: AZATHIOPRINE
     Indication: Ventricular tachycardia
     Dosage: 200 MILLIGRAM, QD
     Route: 065
  2. AZATHIOPRINE [Suspect]
     Active Substance: AZATHIOPRINE
     Indication: Giant cell myocarditis
     Dosage: 200 MILLIGRAM, QD
     Route: 065
  3. METHYLPREDNISOLONE [Suspect]
     Active Substance: METHYLPREDNISOLONE
     Indication: Ventricular tachycardia
     Dosage: 1 GRAM, PULSE DOSE
     Route: 042
  4. METHYLPREDNISOLONE [Suspect]
     Active Substance: METHYLPREDNISOLONE
     Indication: Giant cell myocarditis
  5. PREDNISONE [Suspect]
     Active Substance: PREDNISONE
     Indication: Ventricular tachycardia
     Dosage: UNK
     Route: 065
  6. PREDNISONE [Suspect]
     Active Substance: PREDNISONE
     Indication: Giant cell myocarditis
     Dosage: 60 MILLIGRAM, QD BY A TAPER
     Route: 065
  7. CYCLOSPORINE [Suspect]
     Active Substance: CYCLOSPORINE
     Indication: Ventricular tachycardia
     Dosage: UNK
     Route: 065
  8. CYCLOSPORINE [Suspect]
     Active Substance: CYCLOSPORINE
     Indication: Giant cell myocarditis
     Dosage: 75 MILLIGRAM, BID
     Route: 065
  9. AMIODARONE [Concomitant]
     Active Substance: AMIODARONE
     Indication: Ventricular tachycardia
     Dosage: UNK
     Route: 042
  10. AMIODARONE [Concomitant]
     Active Substance: AMIODARONE
     Dosage: 200 MILLIGRAM, QD
     Route: 048

REACTIONS (2)
  - Cardiac failure [Unknown]
  - Opportunistic infection [Unknown]
